FAERS Safety Report 8066393-1 (Version None)
Quarter: 2012Q1

REPORT INFORMATION
  Report Type: 
  Country: None (occurrence: None)
  Receive Date: 20120124
  Receipt Date: 20120124
  Transmission Date: 20120608
  Serious: Yes (Life-Threatening, Other)
  Sender: FDA-Public Use
  Company Number: None

PATIENT
  Age: 41 Year
  Sex: Male
  Weight: 65 kg

DRUGS (12)
  1. ARANESP -ALBUMIN FREE- SOLN -DARBEPOETIN ALFA-POLYSORBATE SOLN- [Concomitant]
  2. ZOCOR [Concomitant]
     Route: 048
  3. HECTOROL SOLN -DOXERCALCIFEROL SOLN [Concomitant]
  4. PRILOSEC [Concomitant]
     Route: 048
  5. PROLIA [Suspect]
     Indication: OSTEOPOROSIS
     Dosage: 60 MG/ML
     Route: 058
     Dates: start: 20120105, end: 20120105
  6. NA FERRIC GLUC CPLX IN SUCROSE [Concomitant]
  7. NULECIT 12.5 MG/ML SOLN [Concomitant]
  8. NEPHPLEX-RX [Concomitant]
     Route: 048
  9. LEVOCARNITINE [Concomitant]
     Route: 042
  10. HYDROCORTISONE 0.5 % CREA [Concomitant]
     Route: 061
  11. PHOSLO 667 MG CAPS [Concomitant]
     Route: 048
  12. CAPTOPRIL [Concomitant]
     Route: 048

REACTIONS (1)
  - HYPOCALCAEMIA [None]
